FAERS Safety Report 8018273-5 (Version None)
Quarter: 2011Q4

REPORT INFORMATION
  Report Type: 
  Country: None (occurrence: None)
  Receive Date: 20111228
  Receipt Date: 20111213
  Transmission Date: 20120403
  Serious: Yes (Hospitalization, Other)
  Sender: FDA-Public Use
  Company Number: 1000022931

PATIENT
  Age: 81 Year
  Sex: Male

DRUGS (6)
  1. MEMANTINE HYDROCHLORIDE [Suspect]
     Indication: DEMENTIA ALZHEIMER'S TYPE
     Dosage: 5 MG (5 MG, 1 IN 1 D), ORAL
     Route: 048
     Dates: start: 20110614, end: 20110621
  2. GASTER (OMEPRAZOLE) (OMEPRAZOLE) [Concomitant]
  3. MEMANTINE HYDROCHLORIDE [Suspect]
     Indication: DEMENTIA ALZHEIMER'S TYPE
     Dosage: 15 MG (15 MG, 1 IN 1 D), ORAL
     Route: 048
     Dates: start: 20110719, end: 20110726
  4. PREMINENT (LOSARTAN POTASSIUM, HYDROCHLOROTHIAZIDE) (LOSARTAN POTASSIU [Concomitant]
  5. AMLODIPINE BESYLATE [Concomitant]
  6. DOGMATYL (SULPIRIDE) (SULPIRIDE) [Concomitant]

REACTIONS (15)
  - BLOOD CREATINE PHOSPHOKINASE MB INCREASED [None]
  - HAEMOGLOBIN DECREASED [None]
  - RED BLOOD CELL COUNT INCREASED [None]
  - SOMNOLENCE [None]
  - INTERNATIONAL NORMALISED RATIO INCREASED [None]
  - DEHYDRATION [None]
  - BRAIN NATRIURETIC PEPTIDE INCREASED [None]
  - BLOOD CREATININE INCREASED [None]
  - BLOOD GLUCOSE INCREASED [None]
  - FIBRIN D DIMER INCREASED [None]
  - RHABDOMYOLYSIS [None]
  - PROTEIN TOTAL DECREASED [None]
  - EXERCISE TOLERANCE DECREASED [None]
  - GLYCOSYLATED HAEMOGLOBIN INCREASED [None]
  - BLOOD POTASSIUM DECREASED [None]
